FAERS Safety Report 6193760-3 (Version None)
Quarter: 2009Q2

REPORT INFORMATION
  Report Type: 
  Country: None (occurrence: None)
  Receive Date: 20090518
  Receipt Date: 20090507
  Transmission Date: 20091009
  Serious: Yes (Death, Hospitalization)
  Sender: FDA-Public Use
  Company Number: SK-PFIZER INC-2008054075

PATIENT
  Age: 72 Year

DRUGS (10)
  1. BLINDED *PLACEBO [Suspect]
     Indication: LUNG NEOPLASM MALIGNANT
     Dosage: 37.5 MG, 1X/DAY
     Route: 048
     Dates: start: 20080527
  2. BLINDED SUNITINIB MALATE [Suspect]
     Indication: LUNG NEOPLASM MALIGNANT
     Dosage: 37.5 MG, 1X/DAY
     Route: 048
     Dates: start: 20080527
  3. *ERLOTINIB [Suspect]
     Indication: LUNG NEOPLASM MALIGNANT
     Dosage: 150 MG, 1X/DAY
     Route: 048
     Dates: start: 20080527
  4. BUPRENORPHINE HCL [Concomitant]
     Route: 062
     Dates: start: 20080421
  5. DALTEPARIN SODIUM [Concomitant]
     Route: 058
     Dates: start: 20080326
  6. SERETIDE [Concomitant]
     Route: 055
     Dates: start: 20080229
  7. SPIRIVA [Concomitant]
     Route: 055
     Dates: start: 20080229
  8. XANAX [Concomitant]
     Route: 048
     Dates: start: 20080326
  9. REASEC [Concomitant]
     Route: 048
     Dates: start: 20080528
  10. LOPERAMIDE HCL [Concomitant]
     Route: 048
     Dates: start: 20080611

REACTIONS (2)
  - CEREBRAL ISCHAEMIA [None]
  - DIARRHOEA [None]
